FAERS Safety Report 10986749 (Version 2)
Quarter: 2015Q2

REPORT INFORMATION
  Report Type: Spontaneous
  Country: US (occurrence: US)
  Receive Date: 20150404
  Receipt Date: 20150525
  Transmission Date: 20150821
  Serious: No
  Sender: FDA-Public Use
  Company Number: US-JNJFOC-20140117432

PATIENT
  Age: 71 Year
  Sex: Male
  Weight: 99.79 kg

DRUGS (5)
  1. EXCEDRIN [Concomitant]
     Active Substance: ACETAMINOPHEN\ASPIRIN\CAFFEINE
     Indication: TOOTHACHE
     Dosage: FROM MORE THA 5 YEARS
     Route: 065
  2. EXCEDRIN [Concomitant]
     Active Substance: ACETAMINOPHEN\ASPIRIN\CAFFEINE
     Indication: PAIN
     Dosage: FROM MORE THA 5 YEARS
     Route: 065
  3. IMODIUM MULTI-SYMPTOM RELIEF [Suspect]
     Active Substance: DIMETHICONE\LOPERAMIDE HYDROCHLORIDE
     Route: 048
  4. IMODIUM MULTI-SYMPTOM RELIEF [Suspect]
     Active Substance: DIMETHICONE\LOPERAMIDE HYDROCHLORIDE
     Indication: DIARRHOEA
     Dosage: TOOK 2 CAPLETS JUST ONCE
     Route: 048
     Dates: start: 20140125, end: 20140125
  5. EXCEDRIN [Concomitant]
     Active Substance: ACETAMINOPHEN\ASPIRIN\CAFFEINE
     Indication: HEADACHE
     Dosage: FROM MORE THA 5 YEARS
     Route: 065

REACTIONS (4)
  - Retching [Recovered/Resolved]
  - Dysphagia [Recovered/Resolved]
  - Choking [Recovered/Resolved]
  - Product coating issue [Unknown]

NARRATIVE: CASE EVENT DATE: 20140125
